FAERS Safety Report 8793804 (Version 2)
Quarter: 2012Q4

REPORT INFORMATION
  Report Type: Report from Study
  Country: JP (occurrence: JP)
  Receive Date: 20120917
  Receipt Date: 20121217
  Transmission Date: 20130627
  Serious: Yes (Hospitalization)
  Sender: FDA-Public Use
  Company Number: JP-VERTEX PHARMACEUTICAL INC.-AE-2012-009255

PATIENT
  Age: 45 Year
  Sex: Male

DRUGS (16)
  1. RIZE                               /00624801/ [Concomitant]
     Dosage: 5 mg, prn
     Route: 048
     Dates: start: 20120619
  2. ALLOZYM [Concomitant]
     Dosage: 100 mg, qd
     Route: 048
  3. RABEPRAZOLE [Concomitant]
     Dosage: 20 mg, qd
     Route: 048
     Dates: end: 20120624
  4. KOBALNON [Concomitant]
     Dosage: 150 mg, qd
     Route: 048
     Dates: end: 20120624
  5. VX-950 (TELAPREVIR) [Suspect]
     Indication: CHRONIC HEPATITIS C
     Dosage: 2250 mg, qd
     Route: 048
     Dates: start: 20120308, end: 20120518
  6. REBETOL [Suspect]
     Indication: CHRONIC HEPATITIS C
     Dosage: 800 mg, qd
     Route: 048
     Dates: start: 20120308, end: 20120424
  7. REBETOL [Suspect]
     Dosage: 600 mg, qd
     Route: 048
     Dates: start: 20120425, end: 20120515
  8. REBETOL [Suspect]
     Dosage: 400 mg, qd
     Route: 048
     Dates: start: 20120516, end: 20120522
  9. PEGINTERFERON ALFA-2B [Suspect]
     Indication: CHRONIC HEPATITIS C
     Dosage: 1.5 ?g/kg, qw
     Route: 058
     Dates: start: 20120308, end: 20120515
  10. URSODEOXYCHOLIC ACID [Concomitant]
     Dosage: 600 mg, qd
     Route: 048
  11. URSODEOXYCHOLIC ACID [Concomitant]
     Dosage: 600 mg, qd
     Route: 048
     Dates: start: 20120619
  12. VOLTAREN                           /00372301/ [Concomitant]
     Dosage: 25 mg, prn
     Route: 054
     Dates: start: 20120308
  13. CALONAL [Concomitant]
     Dosage: 200 mg, prn
     Route: 048
     Dates: start: 20120309
  14. NAUZELIN [Concomitant]
     Dosage: 10 mg, prn
     Route: 048
  15. OMEPRAZOLE [Concomitant]
     Dosage: 20 mg, qd
     Route: 048
     Dates: start: 20120309
  16. RIZE                               /00624801/ [Concomitant]
     Dosage: 5 mg, qd
     Route: 048
     Dates: start: 20120309

REACTIONS (2)
  - Drug eruption [Recovered/Resolved]
  - Nausea [Unknown]
